FAERS Safety Report 10359082 (Version 3)
Quarter: 2015Q1

REPORT INFORMATION
  Report Type: Report from Study
  Country: RU (occurrence: RU)
  Receive Date: 20140804
  Receipt Date: 20150224
  Transmission Date: 20150720
  Serious: Yes (Other)
  Sender: FDA-Public Use
  Company Number: RU-ROCHE-1440449

PATIENT

DRUGS (4)
  1. PARACETAMOL [Concomitant]
     Active Substance: ACETAMINOPHEN
     Indication: PREMEDICATION
     Dosage: BEFORE EACH RITUXIMAB INFUSION
     Route: 048
  2. DEXAMETHASONE. [Concomitant]
     Active Substance: DEXAMETHASONE
     Indication: PREMEDICATION
     Dosage: BEFORE EACH RITUXIMAB INFUSION
     Route: 051
  3. RITUXIMAB [Suspect]
     Active Substance: RITUXIMAB
     Indication: NON-HODGKIN^S LYMPHOMA
     Dosage: TOTAL 4 INFUSIONS
     Route: 041
  4. DIPHENHYDRAMINE [Concomitant]
     Active Substance: DIPHENHYDRAMINE
     Indication: PREMEDICATION
     Dosage: BEFORE EACH RITUXIMAB INFUSION
     Route: 051

REACTIONS (10)
  - Alanine aminotransferase increased [Unknown]
  - Thrombocytopenia [Unknown]
  - Electrocardiogram abnormal [Unknown]
  - Urine analysis abnormal [Unknown]
  - Deep vein thrombosis [Unknown]
  - Anaemia [Unknown]
  - Neutropenia [Unknown]
  - Lymphopenia [Unknown]
  - Leukopenia [Unknown]
  - Hypertension [Unknown]
